FAERS Safety Report 6287601-3 (Version None)
Quarter: 2009Q3

REPORT INFORMATION
  Report Type: 
  Country: None (occurrence: None)
  Receive Date: 20090727
  Receipt Date: 20090727
  Transmission Date: 20100115
  Serious: Yes (Life-Threatening, Hospitalization, Disabling, Other)
  Sender: FDA-Public Use
  Company Number: None

PATIENT
  Sex: Female
  Weight: 77.1115 kg

DRUGS (1)
  1. PREDNISONE TAB [Suspect]
     Indication: RHEUMATOID ARTHRITIS
     Dosage: 5 MG 2 TIMES DAY HAS VARIED UP TO 30 MGS.
     Dates: start: 19980101, end: 20090101

REACTIONS (4)
  - BALANCE DISORDER [None]
  - FALL [None]
  - NERVOUS SYSTEM DISORDER [None]
  - SPINAL CORD DISORDER [None]
